FAERS Safety Report 22102845 (Version 1)
Quarter: 2023Q1

REPORT INFORMATION
  Report Type: Spontaneous
  Country: CA (occurrence: CA)
  Receive Date: 20230316
  Receipt Date: 20230316
  Transmission Date: 20230418
  Serious: Yes (Other)
  Sender: FDA-Public Use
  Company Number: CA-ELI_LILLY_AND_COMPANY-CA202303004060

PATIENT
  Age: 37 Year
  Sex: Female

DRUGS (2)
  1. ADCIRCA [Suspect]
     Active Substance: TADALAFIL
     Indication: Pulmonary arterial hypertension
     Dosage: UNK UNK, UNKNOWN
     Route: 065
  2. VAXZEVRIA [Suspect]
     Active Substance: AZD-1222
     Indication: Product used for unknown indication
     Dosage: UNK UNK, UNKNOWN
     Route: 030

REACTIONS (5)
  - Loss of consciousness [Unknown]
  - Feeling abnormal [Unknown]
  - Amnesia [Unknown]
  - Abdominal discomfort [Unknown]
  - Dizziness [Unknown]
